FAERS Safety Report 6555109-3 (Version None)
Quarter: 2010Q1

REPORT INFORMATION
  Report Type: 
  Country: None (occurrence: None)
  Receive Date: 20100126
  Receipt Date: 20100126
  Transmission Date: 20100710
  Serious: Yes (Disabling, Congenital Anomaly, Other)
  Sender: FDA-Public Use
  Company Number: None

PATIENT
  Age: 17 Year
  Sex: Female
  Weight: 53.5244 kg

DRUGS (1)
  1. PROVERA [Suspect]
     Indication: ABORTION SPONTANEOUS
     Dosage: 1 MG ONCE DAILY
     Dates: start: 20070101

REACTIONS (3)
  - INFERTILITY FEMALE [None]
  - SCAR [None]
  - UTERINE DISORDER [None]
